FAERS Safety Report 6979591-2 (Version None)
Quarter: 2010Q3

REPORT INFORMATION
  Report Type: 
  Country: None (occurrence: None)
  Receive Date: 20100910
  Receipt Date: 20100910
  Transmission Date: 20110219
  Serious: Yes (Other)
  Sender: FDA-Public Use
  Company Number: None

PATIENT
  Sex: Female
  Weight: 81.8 kg

DRUGS (1)
  1. VICTOZA [Suspect]
     Indication: DIABETES MELLITUS
     Dosage: VICTOZA 0.6MG DAILY SUBCU
     Route: 058
     Dates: start: 20100526

REACTIONS (2)
  - CATARACT [None]
  - INTRAOCULAR LENS IMPLANT [None]
